FAERS Safety Report 23596813 (Version 1)
Quarter: 2024Q1

REPORT INFORMATION
  Report Type: Spontaneous
  Country: US (occurrence: US)
  Receive Date: 20240305
  Receipt Date: 20240305
  Transmission Date: 20240409
  Serious: No
  Sender: FDA-Public Use
  Company Number: US-SA-SAC20240229000699

PATIENT
  Sex: Male

DRUGS (1)
  1. DUPIXENT [Suspect]
     Active Substance: DUPILUMAB
     Indication: Dermatitis atopic
     Dosage: 300 MG, Q4W
     Route: 058

REACTIONS (6)
  - Psychomotor hyperactivity [Unknown]
  - Skin papilloma [Unknown]
  - Dermatitis atopic [Unknown]
  - Dyshidrotic eczema [Unknown]
  - Swelling [Unknown]
  - Rash macular [Unknown]
